FAERS Safety Report 5622106-1 (Version None)
Quarter: 2008Q1

REPORT INFORMATION
  Report Type: 
  Country: None (occurrence: None)
  Receive Date: 20080211
  Receipt Date: 20080130
  Transmission Date: 20080703
  Serious: Yes (Death)
  Sender: FDA-Public Use
  Company Number: US-TYCO HEALTHCARE/MALLINCKRODT-T200800028

PATIENT

DRUGS (16)
  1. METHADOSE [Suspect]
     Indication: FIBROMYALGIA
     Dosage: 5 MG, TID
     Dates: start: 20071017
  2. METHADOSE [Suspect]
     Indication: OSTEOARTHRITIS
  3. METHADOSE [Suspect]
     Indication: PAIN
  4. OXYCONTIN [Suspect]
     Indication: PAIN
     Dosage: GREATHER THAN 60 MG/DAY
  5. GLUCOPHAGE [Concomitant]
     Dosage: 500 MG, BID
     Route: 048
  6. ASPIRIN [Concomitant]
     Dosage: 325 MG, QD
     Route: 048
  7. TOPROL-XL [Concomitant]
     Dosage: 50 MG, QD
     Route: 048
  8. DIOVAN                             /01319601/ [Concomitant]
     Dosage: 80 MG, QD
     Route: 048
  9. CYMBALTA [Concomitant]
     Dosage: 60 MG, QD
     Route: 048
  10. ACTOS [Concomitant]
     Dosage: 30 MG, QD
  11. AMARYL [Concomitant]
     Dosage: 1 MG, QD
  12. LEVOXYL [Concomitant]
     Dosage: 50 UNK, UNK
  13. PREDNISONE TAB [Concomitant]
     Dosage: 10 MG, QD
     Route: 048
  14. VITAMIN B COMPLEX                  /01753401/ [Concomitant]
  15. OMEGA 3 FISH OIL [Concomitant]
  16. GARLIC [Concomitant]
     Dosage: 600 MG, QD
     Route: 048

REACTIONS (1)
  - CARDIAC DISORDER [None]
